FAERS Safety Report 6741172-3 (Version None)
Quarter: 2010Q2

REPORT INFORMATION
  Report Type: 
  Country: None (occurrence: None)
  Receive Date: 20100525
  Receipt Date: 20100525
  Transmission Date: 20101027
  Serious: Yes (Life-Threatening)
  Sender: FDA-Public Use
  Company Number: None

PATIENT
  Age: 64 Year
  Sex: Male

DRUGS (2)
  1. ENBREL [Suspect]
     Indication: RHEUMATOID ARTHRITIS
     Dosage: ENBREL 50MG WEEKLY SQ
     Route: 058
     Dates: start: 20041208, end: 20100406
  2. ENBREL [Suspect]
     Indication: RHEUMATOID ARTHRITIS
     Dosage: ENBREL 25 MG 2 X WEEK SQ
     Route: 058
     Dates: start: 20000828, end: 20041208

REACTIONS (1)
  - B-CELL LYMPHOMA [None]
